FAERS Safety Report 5139276-4 (Version None)
Quarter: 2006Q4

REPORT INFORMATION
  Report Type: 
  Country: None (occurrence: None)
  Receive Date: 20061023
  Receipt Date: 20061006
  Transmission Date: 20070319
  Serious: Yes (Hospitalization)
  Sender: FDA-Public Use
  Company Number: US200610001405

PATIENT
  Sex: Female

DRUGS (4)
  1. FORTEO [Suspect]
     Indication: OSTEOPOROSIS
     Dates: start: 20060706
  2. FORTEO PEN (250MCG/ML (3ML)) PEN,DISPOSABLE [Concomitant]
  3. PLAVIX [Concomitant]
  4. ASPIRIN [Concomitant]

REACTIONS (2)
  - ANGIOPATHY [None]
  - OEDEMA PERIPHERAL [None]
